FAERS Safety Report 18428957 (Version 3)
Quarter: 2020Q4

REPORT INFORMATION
  Report Type: Spontaneous
  Country: US (occurrence: US)
  Receive Date: 20201026
  Receipt Date: 20201104
  Transmission Date: 20210114
  Serious: No
  Sender: FDA-Public Use
  Company Number: US-PFIZER INC-2020411681

PATIENT
  Age: 61 Year
  Sex: Female
  Weight: 91.63 kg

DRUGS (2)
  1. IBRANCE [Suspect]
     Active Substance: PALBOCICLIB
     Indication: BREAST CANCER STAGE IV
     Dosage: UNK, CYCLIC(21 DAY, 7 DAYS OFF)
     Route: 048
     Dates: start: 201903
  2. ANASTROZOLE. [Concomitant]
     Active Substance: ANASTROZOLE
     Indication: BREAST CANCER STAGE IV
     Dosage: 1 MG, DAILY
     Route: 048
     Dates: start: 20201005

REACTIONS (3)
  - Product storage error [Unknown]
  - Weight loss poor [Unknown]
  - Weight increased [Unknown]

NARRATIVE: CASE EVENT DATE: 2020
